FAERS Safety Report 10712217 (Version 1)
Quarter: 2015Q1

REPORT INFORMATION
  Report Type: Spontaneous
  Country: RO (occurrence: RO)
  Receive Date: 20150114
  Receipt Date: 20150114
  Transmission Date: 20150721
  Serious: Yes (Hospitalization)
  Sender: FDA-Public Use
  Company Number: PHHY2015RO001888

PATIENT
  Age: 64 Year
  Sex: Male

DRUGS (8)
  1. CELECOXIB. [Suspect]
     Active Substance: CELECOXIB
     Indication: PAIN IN EXTREMITY
     Dosage: 200 MG, QD
     Route: 065
  2. ALGOCALMIN [Suspect]
     Active Substance: METAMIZOLE SODIUM
     Indication: PAIN IN EXTREMITY
     Dosage: 2 DF, QD
     Route: 065
  3. PIROXICAM. [Suspect]
     Active Substance: PIROXICAM
     Indication: PAIN IN EXTREMITY
     Dosage: 20 MG, QD
     Route: 065
  4. ANTINEVRALGIC [Suspect]
     Active Substance: ASPIRIN\CAFFEINE\PHENACETIN
     Indication: PAIN IN EXTREMITY
     Dosage: 2 DF, QD
     Route: 065
  5. BISEPTOL [Suspect]
     Active Substance: SULFAMETHOXAZOLE\TRIMETHOPRIM
     Indication: CHROMATURIA
     Dosage: 3 DF, QD
     Route: 065
  6. IBUPROFEN. [Suspect]
     Active Substance: IBUPROFEN
     Indication: PAIN IN EXTREMITY
     Dosage: 200 MG, QD
     Route: 065
  7. KETOROLAC [Suspect]
     Active Substance: KETOROLAC\KETOROLAC TROMETHAMINE
     Indication: PAIN IN EXTREMITY
     Dosage: 30 MG/ML, UNK
     Route: 051
  8. MELOXICAM. [Suspect]
     Active Substance: MELOXICAM
     Indication: PAIN IN EXTREMITY
     Dosage: 2 DF, QD
     Route: 051

REACTIONS (15)
  - Pain in extremity [Unknown]
  - Hyponatraemia [Unknown]
  - Gait disturbance [Unknown]
  - Chromaturia [Unknown]
  - Myalgia [Unknown]
  - Hyperuricaemia [Unknown]
  - Oedema peripheral [Unknown]
  - Blood lactate dehydrogenase increased [Unknown]
  - Oliguria [Unknown]
  - Peripheral swelling [Unknown]
  - Acidosis [Unknown]
  - Rhabdomyolysis [Recovering/Resolving]
  - Transaminases increased [Unknown]
  - Hypocalcaemia [Unknown]
  - Polyneuropathy [Unknown]
